FAERS Safety Report 9648295 (Version 2)
Quarter: 2014Q2

REPORT INFORMATION
  Report Type: Spontaneous
  Country: US (occurrence: US)
  Receive Date: 20131028
  Receipt Date: 20140429
  Transmission Date: 20141212
  Serious: Yes (Hospitalization)
  Sender: FDA-Public Use
  Company Number: US-B.I. PHARMACEUTICALS,INC./RIDGEFIELD-2013-BI-34334BP

PATIENT
  Sex: Female
  Weight: 108.86 kg

DRUGS (11)
  1. PRADAXA [Suspect]
     Indication: ATRIAL FIBRILLATION
     Dosage: 150 MG
     Route: 065
     Dates: start: 20130208, end: 20130406
  2. PRADAXA [Suspect]
     Indication: THROMBOSIS PROPHYLAXIS
  3. LASIX [Concomitant]
     Dosage: 80 MG
     Route: 065
  4. COREG [Concomitant]
     Dosage: 6.25 MG
     Route: 065
  5. LEVOTHYROXINE [Concomitant]
     Dosage: 75 MCG
     Route: 048
  6. SODIUM BICARBONATE [Concomitant]
     Dosage: 1950 MG
     Route: 048
  7. CALCITRIOL [Concomitant]
     Indication: HYPOPARATHYROIDISM
     Dosage: 2 MCG
     Route: 048
  8. ALLOPURINOL [Concomitant]
     Dosage: 300 MG
     Route: 065
  9. WELCHOL [Concomitant]
     Route: 065
  10. CRESTOR [Concomitant]
     Route: 065
  11. ONGLYZA [Concomitant]
     Dosage: 2.5 MG
     Route: 065

REACTIONS (7)
  - Gastrointestinal haemorrhage [Unknown]
  - Coagulopathy [Recovered/Resolved]
  - Haemorrhagic anaemia [Unknown]
  - Haemoptysis [Recovered/Resolved]
  - Renal failure acute [Unknown]
  - Encephalopathy [Unknown]
  - Gingival bleeding [Unknown]
